FAERS Safety Report 7209460-4 (Version None)
Quarter: 2010Q4

REPORT INFORMATION
  Report Type: 
  Country: None (occurrence: None)
  Receive Date: 20101222
  Receipt Date: 20101209
  Transmission Date: 20110411
  Serious: Yes (Hospitalization)
  Sender: FDA-Public Use
  Company Number: 2010005142

PATIENT
  Age: 76 Year
  Sex: Male
  Weight: 103 kg

DRUGS (7)
  1. ERLOTINIB HYDROCHLORIDE [Suspect]
     Indication: HEPATIC NEOPLASM MALIGNANT
     Dosage: 150 MG, QD, ORAL
     Route: 048
     Dates: start: 20101029, end: 20101108
  2. SORAFENIB (TABLET) [Suspect]
     Indication: HEPATIC NEOPLASM MALIGNANT
     Dosage: 800 MG, QD, ORAL
     Route: 048
     Dates: start: 20101029, end: 20101108
  3. METFORMIN HCL [Concomitant]
  4. AMLODIPINE [Concomitant]
  5. LISINOPRIL [Concomitant]
  6. SPIRONOLACTONE [Concomitant]
  7. AMITRIPTYLINE HYDROCHLORIDE [Concomitant]

REACTIONS (2)
  - GASTRIC ULCER HAEMORRHAGE [None]
  - HAEMOGLOBIN DECREASED [None]
